FAERS Safety Report 6464453-X (Version None)
Quarter: 2009Q4

REPORT INFORMATION
  Report Type: 
  Country: None (occurrence: None)
  Receive Date: 20091124
  Receipt Date: 20091109
  Transmission Date: 20100525
  Serious: Yes (Hospitalization)
  Sender: FDA-Public Use
  Company Number: DSU-2009-02541

PATIENT
  Sex: Female

DRUGS (1)
  1. BENICAR HCT [Suspect]
     Indication: HYPERTENSION
     Dosage: 20/6.25MG ((1/2) 40/12.5MG, QD), PER ORAL
     Route: 048
     Dates: start: 20091101, end: 20091101

REACTIONS (3)
  - ANAPHYLACTIC SHOCK [None]
  - DRUG ADMINISTRATION ERROR [None]
  - TABLET ISSUE [None]
